FAERS Safety Report 8299080-5 (Version None)
Quarter: 2012Q2

REPORT INFORMATION
  Report Type: 
  Country: None (occurrence: None)
  Receive Date: 20120419
  Receipt Date: 20120411
  Transmission Date: 20120825
  Serious: Yes (Hospitalization)
  Sender: FDA-Public Use
  Company Number: NZ-B.I. PHARMACEUTICALS,INC./RIDGEFIELD-2011-AU-01276AU

PATIENT
  Sex: Male
  Weight: 126.25 kg

DRUGS (12)
  1. DIGOXIN [Concomitant]
     Dosage: 1.9643 MG
     Route: 048
  2. SIMVASTATIN [Concomitant]
  3. ACETYLSALICYLIC ACID SRT [Concomitant]
     Dosage: 100 MG
     Route: 048
  4. PRADAXA [Suspect]
     Indication: ATRIAL FIBRILLATION
     Dosage: 220 MG
     Dates: start: 20110701, end: 20110805
  5. AMOXYL [Concomitant]
  6. METOPROLOL TARTRATE [Concomitant]
  7. OMEPRAZOLE [Concomitant]
  8. DILTIAZEM [Concomitant]
  9. ALLOPURINOL [Concomitant]
     Dosage: 300 MG
     Route: 048
  10. FUROSEMIDE [Concomitant]
  11. LISINOPRIL [Concomitant]
     Dosage: 5 MG
     Route: 048
  12. TRAMADOL [Concomitant]

REACTIONS (5)
  - ARTERIAL THROMBOSIS LIMB [None]
  - DRUG INEFFECTIVE [None]
  - PERIPHERAL ISCHAEMIA [None]
  - PAIN IN EXTREMITY [None]
  - HAEMATOMA [None]
